FAERS Safety Report 13798461 (Version 1)
Quarter: 2017Q3

REPORT INFORMATION
  Report Type: Report from Study
  Country: CA (occurrence: CA)
  Receive Date: 20170727
  Receipt Date: 20170727
  Transmission Date: 20171127
  Serious: Yes (Hospitalization, Other)
  Sender: FDA-Public Use
  Company Number: CA-AMGEN-CANSL2017110317

PATIENT
  Age: 86 Year
  Sex: Female

DRUGS (4)
  1. ATORVASTATIN [Concomitant]
     Active Substance: ATORVASTATIN
     Dosage: UNK
  2. PROLIA [Suspect]
     Active Substance: DENOSUMAB
     Indication: OSTEOPOROSIS POSTMENOPAUSAL
     Dosage: UNK
     Route: 065
  3. AMLODIPINE W/RAMIPRIL [Concomitant]
     Dosage: UNK
  4. FUROSEMIDE. [Concomitant]
     Active Substance: FUROSEMIDE
     Dosage: UNK

REACTIONS (4)
  - Myocardial infarction [Recovered/Resolved]
  - Blindness [Recovered/Resolved]
  - Gait disturbance [Recovered/Resolved]
  - Cerebrovascular accident [Recovered/Resolved]

NARRATIVE: CASE EVENT DATE: 201609
